FAERS Safety Report 12247901 (Version 1)
Quarter: 2016Q2

REPORT INFORMATION
  Report Type: Spontaneous
  Country: US (occurrence: US)
  Receive Date: 20160408
  Receipt Date: 20160408
  Transmission Date: 20160815
  Serious: No
  Sender: FDA-Public Use
  Company Number: US-ASTRAZENECA-2016SE34166

PATIENT
  Age: 58 Year
  Sex: Female
  Weight: 43.1 kg

DRUGS (3)
  1. OFF BRAND TYLENOL [Concomitant]
     Indication: KNEE DEFORMITY
     Route: 048
  2. NEXIUM [Suspect]
     Active Substance: ESOMEPRAZOLE MAGNESIUM
     Indication: GASTROOESOPHAGEAL REFLUX DISEASE
     Route: 048
     Dates: start: 2006
  3. NEXIUM [Suspect]
     Active Substance: ESOMEPRAZOLE MAGNESIUM
     Indication: HIATUS HERNIA
     Route: 048
     Dates: start: 2006

REACTIONS (10)
  - Somnolence [Unknown]
  - Vertigo [Unknown]
  - Asthenia [Unknown]
  - Drug dose omission [Unknown]
  - Intentional product misuse [Unknown]
  - Feeling abnormal [Unknown]
  - Product use issue [Unknown]
  - Knee deformity [Unknown]
  - Decreased appetite [Unknown]
  - Weight decreased [Unknown]

NARRATIVE: CASE EVENT DATE: 2006
